FAERS Safety Report 12516798 (Version 1)
Quarter: 2016Q2

REPORT INFORMATION
  Report Type: Report from Study
  Country: BR (occurrence: BR)
  Receive Date: 20160630
  Receipt Date: 20160630
  Transmission Date: 20160815
  Serious: Yes (Hospitalization, Other)
  Sender: FDA-Public Use
  Company Number: BR-ABBVIE-16K-020-1662243-00

PATIENT
  Age: 54 Year
  Sex: Male
  Weight: 73 kg

DRUGS (5)
  1. SIMVASTATIN. [Concomitant]
     Active Substance: SIMVASTATIN
     Indication: BLOOD CHOLESTEROL ABNORMAL
     Route: 048
     Dates: start: 201603
  2. HUMIRA [Suspect]
     Active Substance: ADALIMUMAB
     Indication: PSORIATIC ARTHROPATHY
     Route: 058
     Dates: start: 20120101, end: 201407
  3. HUMIRA [Suspect]
     Active Substance: ADALIMUMAB
     Dosage: 20 DAYS LATER
     Route: 058
     Dates: start: 2014, end: 201409
  4. HUMIRA [Suspect]
     Active Substance: ADALIMUMAB
     Route: 058
     Dates: start: 2014, end: 201411
  5. HUMIRA [Suspect]
     Active Substance: ADALIMUMAB
     Dosage: ONE WEEK LATER
     Route: 058
     Dates: start: 2014

REACTIONS (8)
  - Facial bones fracture [Recovered/Resolved]
  - Vitamin D decreased [Not Recovered/Not Resolved]
  - Syncope [Recovered/Resolved]
  - Device related infection [Recovered/Resolved]
  - Anal abscess [Recovered/Resolved]
  - Medical device site swelling [Recovered/Resolved]
  - Intestinal mass [Recovered/Resolved]
  - Fall [Unknown]

NARRATIVE: CASE EVENT DATE: 20140709
